FAERS Safety Report 17867743 (Version 2)
Quarter: 2020Q2

REPORT INFORMATION
  Report Type: Report from Study
  Country: US (occurrence: US)
  Receive Date: 20200605
  Receipt Date: 20200615
  Transmission Date: 20200714
  Serious: No
  Sender: FDA-Public Use
  Company Number: NVSC2020US157595

PATIENT
  Age: 65 Year
  Sex: Male

DRUGS (1)
  1. ENTRESTO [Suspect]
     Active Substance: SACUBITRIL\VALSARTAN
     Indication: PRODUCT USED FOR UNKNOWN INDICATION
     Dosage: 97 MG, UNKNOWN
     Route: 048
     Dates: start: 201906

REACTIONS (7)
  - Seasonal allergy [Recovering/Resolving]
  - Asthma [Recovering/Resolving]
  - Memory impairment [Unknown]
  - Cough [Unknown]
  - Product dose omission [Recovered/Resolved]
  - Mood altered [Unknown]
  - Ejection fraction decreased [Unknown]

NARRATIVE: CASE EVENT DATE: 201910
